FAERS Safety Report 12128100 (Version 1)
Quarter: 2016Q1

REPORT INFORMATION
  Report Type: Report from Study
  Country: HR (occurrence: HR)
  Receive Date: 20160229
  Receipt Date: 20160229
  Transmission Date: 20160526
  Serious: Yes (Hospitalization, Other)
  Sender: FDA-Public Use
  Company Number: PHHY2016HR023526

PATIENT
  Age: 64 Year
  Sex: Male

DRUGS (14)
  1. CELLCEPT [Suspect]
     Active Substance: MYCOPHENOLATE MOFETIL\MYCOPHENOLATE MOFETIL HYDROCHLORIDE
     Indication: PROPHYLAXIS AGAINST TRANSPLANT REJECTION
     Dosage: 2000 MG, QD
     Route: 048
     Dates: start: 20041126
  2. CONTROLOC [Concomitant]
     Active Substance: PANTOPRAZOLE SODIUM
     Indication: PROPHYLAXIS
     Route: 048
     Dates: start: 2011
  3. DECORTIN [Suspect]
     Active Substance: PREDNISONE
     Indication: PROPHYLAXIS AGAINST TRANSPLANT REJECTION
     Dosage: 5 MG, QD
     Route: 048
     Dates: start: 19911203
  4. SANDIMMUNE NEORAL [Suspect]
     Active Substance: CYCLOSPORINE
     Indication: PROPHYLAXIS AGAINST TRANSPLANT REJECTION
     Dosage: 50 MG, QD
     Route: 048
  5. FERRLECIT [Concomitant]
     Active Substance: SODIUM FERRIC GLUCONATE COMPLEX
     Indication: ANAEMIA
     Route: 042
     Dates: start: 2014
  6. LERCANIL [Concomitant]
     Indication: HYPERTENSION
     Route: 048
     Dates: start: 20150527
  7. VITAMIN B12 [Concomitant]
     Active Substance: CYANOCOBALAMIN
     Indication: SUPPLEMENTATION THERAPY
     Route: 030
     Dates: start: 20150527
  8. SANDIMMUNE NEORAL [Suspect]
     Active Substance: CYCLOSPORINE
     Indication: RENAL TRANSPLANT
     Dosage: 150 MG, QD
     Route: 048
     Dates: start: 19950901
  9. TOMID [Concomitant]
     Indication: POLYURIA
     Route: 048
     Dates: start: 20150527
  10. NEBIVOLOL PLIVA [Concomitant]
     Indication: HYPERTENSION
     Route: 048
     Dates: start: 20150317
  11. ROCALTROL [Concomitant]
     Active Substance: CALCITRIOL
     Indication: SUPPLEMENTATION THERAPY
     Route: 048
     Dates: start: 20150527
  12. CELLCEPT [Suspect]
     Active Substance: MYCOPHENOLATE MOFETIL\MYCOPHENOLATE MOFETIL HYDROCHLORIDE
     Dosage: 1000 MG, QD
     Route: 048
  13. SODIUM BICARBONATE. [Concomitant]
     Active Substance: SODIUM BICARBONATE
     Indication: METABOLIC ACIDOSIS
     Route: 048
     Dates: start: 2014
  14. FOLACIN [Concomitant]
     Active Substance: FOLIC ACID
     Indication: ANAEMIA
     Route: 048
     Dates: start: 20150202

REACTIONS (11)
  - C-reactive protein increased [Unknown]
  - Immunosuppressant drug level increased [Recovered/Resolved]
  - Toxicity to various agents [Recovered/Resolved with Sequelae]
  - Blood creatinine increased [Unknown]
  - Blood urea increased [Unknown]
  - General physical health deterioration [Recovered/Resolved]
  - Haemoglobin decreased [Unknown]
  - Gastrointestinal disorder [Recovered/Resolved]
  - Bacteraemia [Recovered/Resolved]
  - Pyrexia [Recovered/Resolved]
  - Klebsiella sepsis [Recovered/Resolved]

NARRATIVE: CASE EVENT DATE: 20150224
